FAERS Safety Report 11176859 (Version 1)
Quarter: 2015Q2

REPORT INFORMATION
  Report Type: Report from Study
  Country: DE (occurrence: DE)
  Receive Date: 20150610
  Receipt Date: 20150610
  Transmission Date: 20150821
  Serious: Yes (Hospitalization)
  Sender: FDA-Public Use
  Company Number: DE-BIOGENIDEC-2015BI076963

PATIENT
  Age: 26 Year
  Sex: Male

DRUGS (1)
  1. AVONEX [Suspect]
     Active Substance: INTERFERON BETA-1A
     Indication: MULTIPLE SCLEROSIS
     Route: 030
     Dates: start: 20140401, end: 20141223

REACTIONS (2)
  - Epilepsy [Recovered/Resolved]
  - Dermatitis [Recovered/Resolved with Sequelae]

NARRATIVE: CASE EVENT DATE: 20141223
